FAERS Safety Report 9113912 (Version 1)
Quarter: 2013Q1

REPORT INFORMATION
  Report Type: Spontaneous
  Country: US (occurrence: US)
  Receive Date: 20130208
  Receipt Date: 20130208
  Transmission Date: 20140127
  Serious: No
  Sender: FDA-Public Use
  Company Number: US-B.I. PHARMACEUTICALS,INC./RIDGEFIELD-2013-BI-03081BP

PATIENT
  Age: 75 Year
  Sex: Female
  Weight: 61 kg

DRUGS (9)
  1. JENTADUETO [Suspect]
     Indication: DIABETES MELLITUS
     Route: 048
     Dates: start: 20130130, end: 20130131
  2. JENTADUETO [Suspect]
     Route: 048
     Dates: start: 20130201
  3. HCTZ [Concomitant]
     Indication: BLOOD PRESSURE
     Route: 048
  4. ISOSORBIDE [Concomitant]
     Indication: HYPERTENSION
  5. CRESTOR [Concomitant]
     Indication: BLOOD CHOLESTEROL INCREASED
  6. METOPROLOL [Concomitant]
     Indication: HYPERTENSION
  7. ATACAND 33 MG [Concomitant]
     Indication: HYPERTENSION
     Route: 048
  8. PANTOPRAZOLE [Concomitant]
     Indication: DYSPEPSIA
     Route: 048
  9. ASPIRIN [Concomitant]

REACTIONS (7)
  - Diarrhoea [Not Recovered/Not Resolved]
  - Abdominal distension [Not Recovered/Not Resolved]
  - Pain [Not Recovered/Not Resolved]
  - Dyspepsia [Not Recovered/Not Resolved]
  - Abdominal pain [Not Recovered/Not Resolved]
  - Vulvovaginal pain [Not Recovered/Not Resolved]
  - Feeling cold [Not Recovered/Not Resolved]
